FAERS Safety Report 6716517-0 (Version None)
Quarter: 2010Q2

REPORT INFORMATION
  Report Type: 
  Country: None (occurrence: None)
  Receive Date: 20100507
  Receipt Date: 20100331
  Transmission Date: 20101027
  Serious: Yes (Other)
  Sender: FDA-Public Use
  Company Number: US-ELI_LILLY_AND_COMPANY-US201004000736

PATIENT
  Age: 37 Year
  Sex: Male

DRUGS (10)
  1. STRATTERA [Suspect]
     Indication: ATTENTION DEFICIT/HYPERACTIVITY DISORDER
     Dosage: 25 MG, UNK
     Dates: start: 20100330
  2. HUMULIN R [Concomitant]
  3. LANTUS [Concomitant]
  4. NORCO [Concomitant]
  5. TRAMADOL [Concomitant]
  6. LIPITOR [Concomitant]
  7. ACCUPRIL [Concomitant]
  8. FLEXERIL [Concomitant]
  9. VISTARIL [Concomitant]
  10. ZOLOFT [Concomitant]

REACTIONS (3)
  - BLOOD GLUCOSE DECREASED [None]
  - HUNGER [None]
  - HYPERHIDROSIS [None]
